FAERS Safety Report 8890772 (Version 1)
Quarter: 2012Q4

REPORT INFORMATION
  Report Type: Report from Study
  Country: JP (occurrence: JP)
  Receive Date: 20121107
  Receipt Date: 20121107
  Transmission Date: 20130627
  Serious: Yes (Hospitalization)
  Sender: FDA-Public Use
  Company Number: JP-VERTEX PHARMACEUTICAL INC.-AE-2012-008710

PATIENT
  Age: 66 Year
  Sex: Male

DRUGS (6)
  1. TELAPREVIR [Suspect]
     Indication: CHRONIC HEPATITIS C
     Dosage: 2250 mg, qd
     Route: 048
     Dates: start: 20120508, end: 20120711
  2. TELAPREVIR [Suspect]
     Dosage: 2250 mg, qd
     Route: 048
     Dates: start: 20120714, end: 20120802
  3. RIBAVIRIN [Suspect]
     Indication: CHRONIC HEPATITIS C
     Dosage: 600 mg, qd
     Route: 048
     Dates: start: 20120508, end: 20120625
  4. RIBAVIRIN [Suspect]
     Dosage: 400 mg, UNK
     Route: 048
     Dates: start: 20120626, end: 20120717
  5. RIBAVIRIN [Suspect]
     Dosage: 600 mg, UNK
     Route: 048
     Dates: start: 20120718, end: 20121022
  6. PEGINTRON                          /01543001/ [Suspect]
     Indication: CHRONIC HEPATITIS C
     Dosage: 1.5 ?g/kg, UNK
     Route: 058
     Dates: start: 20120508, end: 20121016

REACTIONS (5)
  - Malaise [Not Recovered/Not Resolved]
  - Rash [Recovered/Resolved]
  - Haemoglobin decreased [None]
  - Pyrexia [None]
  - Hyperuricaemia [None]
